FAERS Safety Report 4279374-0 (Version None)
Quarter: 2004Q1

REPORT INFORMATION
  Report Type: 
  Country: None (occurrence: None)
  Receive Date: 20040126
  Receipt Date: 20040126
  Transmission Date: 20041129
  Serious: Yes (Hospitalization)
  Sender: FDA-Public Use
  Company Number: None

PATIENT
  Age: 66 Year
  Sex: Male

DRUGS (2)
  1. PIPERACILLIN/TAZOBACTAM 3.375 GM [Suspect]
     Indication: CELLULITIS
     Dosage: 3.375 GM Q6H INTRAVENOUS
     Route: 042
     Dates: start: 20031030, end: 20031112
  2. PIPERACILLIN/TAZOBACTAM 3.375 MG BACTAM [Suspect]
     Indication: CELLULITIS
     Dosage: 3.375 MG Q8H INTRAVENOUS
     Route: 042
     Dates: start: 20031113, end: 20031115

REACTIONS (4)
  - ISCHAEMIA [None]
  - LEG AMPUTATION [None]
  - NEPHRITIS INTERSTITIAL [None]
  - RENAL IMPAIRMENT [None]
